FAERS Safety Report 10182127 (Version 1)
Quarter: 2014Q2

REPORT INFORMATION
  Report Type: Spontaneous
  Country: US (occurrence: US)
  Receive Date: 20140520
  Receipt Date: 20140520
  Transmission Date: 20141212
  Serious: Yes (Hospitalization, Other)
  Sender: FDA-Public Use
  Company Number: US-AMGEN-USASP2014035584

PATIENT
  Age: 34 Year
  Sex: Female

DRUGS (1)
  1. NPLATE [Suspect]
     Indication: THROMBOCYTOPENIA
     Dosage: UNK
     Route: 065
     Dates: start: 201201

REACTIONS (7)
  - Splenectomy [Unknown]
  - Cholecystectomy [Unknown]
  - Unevaluable event [Unknown]
  - Fatigue [Unknown]
  - Pain [Unknown]
  - Gastrointestinal injury [Unknown]
  - Pancreatic injury [Unknown]
